FAERS Safety Report 20208437 (Version 1)
Quarter: 2021Q4

REPORT INFORMATION
  Report Type: Spontaneous
  Country: US (occurrence: None)
  Receive Date: 20211216
  Receipt Date: 20211216
  Transmission Date: 20220304
  Serious: Yes (Death)
  Sender: FDA-Public Use
  Company Number: None

PATIENT
  Age: 31 Year
  Sex: Male

DRUGS (5)
  1. HERBALS\MITRAGYNINE [Suspect]
     Active Substance: HERBALS\MITRAGYNINE
     Indication: Product used for unknown indication
  2. LUNESTA [Concomitant]
     Active Substance: ESZOPICLONE
  3. MODAFINIL [Concomitant]
     Active Substance: MODAFINIL
  4. VITAMIN D3 [Concomitant]
     Active Substance: CHOLECALCIFEROL
  5. VRAYLAR [Concomitant]
     Active Substance: CARIPRAZINE

REACTIONS (5)
  - Loss of consciousness [None]
  - Accidental overdose [None]
  - Toxicity to various agents [None]
  - Alcohol poisoning [None]
  - Intentional product use issue [None]

NARRATIVE: CASE EVENT DATE: 20210721
